FAERS Safety Report 5842635-5 (Version None)
Quarter: 2008Q3

REPORT INFORMATION
  Report Type: 
  Country: None (occurrence: None)
  Receive Date: 20080808
  Receipt Date: 20080725
  Transmission Date: 20090109
  Serious: Yes (Other)
  Sender: FDA-Public Use
  Company Number: 2008BI019557

PATIENT
  Sex: Female

DRUGS (1)
  1. AVONEX [Suspect]
     Indication: MULTIPLE SCLEROSIS
     Dates: start: 19970101, end: 19980101

REACTIONS (5)
  - BEDRIDDEN [None]
  - COLON CANCER [None]
  - ECONOMIC PROBLEM [None]
  - INFLUENZA LIKE ILLNESS [None]
  - VOMITING [None]
